FAERS Safety Report 13770852 (Version 1)
Quarter: 2017Q3

REPORT INFORMATION
  Report Type: Spontaneous
  Country: US (occurrence: US)
  Receive Date: 20170720
  Receipt Date: 20170720
  Transmission Date: 20171127
  Serious: Yes (Hospitalization)
  Sender: FDA-Public Use
  Company Number: None

PATIENT
  Age: 20 Year
  Sex: Female
  Weight: 61.8 kg

DRUGS (6)
  1. DAUNORUBICIN [Suspect]
     Active Substance: DAUNORUBICIN
     Dates: end: 20170626
  2. ONCASPAR [Suspect]
     Active Substance: PEGASPARGASE
     Dates: end: 20170610
  3. PREDNISONE. [Suspect]
     Active Substance: PREDNISONE
     Dates: end: 20170703
  4. METHOTREXATE. [Suspect]
     Active Substance: METHOTREXATE
     Dates: end: 20170703
  5. CYTARABINE. [Suspect]
     Active Substance: CYTARABINE
     Dates: end: 20170605
  6. VINCRISTINE SULFATE. [Suspect]
     Active Substance: VINCRISTINE SULFATE
     Dates: end: 20170626

REACTIONS (10)
  - Agitation [None]
  - Tumour lysis syndrome [None]
  - Insomnia [None]
  - Aggression [None]
  - Delirium [None]
  - Acute kidney injury [None]
  - Incoherent [None]
  - Psychotic disorder [None]
  - Mania [None]
  - Cellulitis [None]

NARRATIVE: CASE EVENT DATE: 20170708
